FAERS Safety Report 17433669 (Version 4)
Quarter: 2020Q1

REPORT INFORMATION
  Report Type: Spontaneous
  Country: US (occurrence: US)
  Receive Date: 20200219
  Receipt Date: 20200311
  Transmission Date: 20200409
  Serious: Yes (Hospitalization)
  Sender: FDA-Public Use
  Company Number: US-KARYOPHARM THERAPEUTICS, INC.-2020KPT000154

PATIENT

DRUGS (1)
  1. XPOVIO [Suspect]
     Active Substance: SELINEXOR
     Indication: PRODUCT USED FOR UNKNOWN INDICATION
     Dosage: 80 MG, WEEKLY
     Dates: start: 20200102, end: 20200106

REACTIONS (10)
  - Leukopenia [Unknown]
  - Dyspnoea exertional [Recovered/Resolved]
  - Thrombocytopenia [Unknown]
  - Respiratory syncytial virus infection [Unknown]
  - Decreased appetite [Recovering/Resolving]
  - Fatigue [Unknown]
  - Bronchitis [Unknown]
  - Photopsia [Not Recovered/Not Resolved]
  - Anaemia [Unknown]
  - Pneumonia [Unknown]

NARRATIVE: CASE EVENT DATE: 202001
